FAERS Safety Report 5776187-5 (Version None)
Quarter: 2008Q2

REPORT INFORMATION
  Report Type: 
  Country: None (occurrence: None)
  Receive Date: 20080613
  Receipt Date: 20080604
  Transmission Date: 20081010
  Serious: Yes (Other)
  Sender: FDA-Public Use
  Company Number: 08H-130-0314365-00

PATIENT
  Age: 56 Year
  Sex: Male

DRUGS (3)
  1. DOBUTAMINE AND DEXTROSE SOLUTION (DOBUTAMINE, DEXTROSE SOLUTION) (DOBU [Suspect]
     Indication: STRESS ECHOCARDIOGRAM
     Dosage: 10 MCG/KG/MIN, INFUSION; 20 MCG/KG/MIN, INFUSION; 30 MCG/KG/MIN, INFUSION
  2. ACETYLSALICYLIC ACID SRT [Concomitant]
  3. ATENOLOL [Concomitant]

REACTIONS (5)
  - AORTIC OCCLUSION [None]
  - HYPOTENSION [None]
  - LOSS OF CONSCIOUSNESS [None]
  - SYNCOPE [None]
  - VENTRICULAR HYPERTROPHY [None]
